FAERS Safety Report 5851679-9 (Version None)
Quarter: 2008Q3

REPORT INFORMATION
  Report Type: 
  Country: None (occurrence: None)
  Receive Date: 20080820
  Receipt Date: 20080814
  Transmission Date: 20090109
  Serious: Yes (Hospitalization)
  Sender: FDA-Public Use
  Company Number: US-BOEHRINGER INGELHEIM GMBH, GERMANY-2008-BP-12843RO

PATIENT
  Age: 9 Year
  Sex: Female

DRUGS (9)
  1. MIDAZOLAM HCL [Suspect]
     Indication: STATUS EPILEPTICUS
     Route: 042
  2. OXCARBAZEPINE [Suspect]
     Indication: STATUS EPILEPTICUS
  3. FOSPHENYTOIN [Suspect]
     Indication: STATUS EPILEPTICUS
  4. PHENOBARBITAL TAB [Suspect]
     Indication: STATUS EPILEPTICUS
  5. DOPAMINE HCL [Suspect]
     Indication: HYPOTENSION
  6. EPINEPHRINE [Concomitant]
     Indication: BLOOD PRESSURE ABNORMAL
  7. PHENYLEPHRINE [Concomitant]
     Indication: BLOOD PRESSURE ABNORMAL
  8. VASOPRESSOR [Concomitant]
     Indication: METABOLIC ACIDOSIS
  9. INOTROPE [Concomitant]
     Indication: METABOLIC ACIDOSIS

REACTIONS (3)
  - DRUG INEFFECTIVE [None]
  - HAEMODYNAMIC INSTABILITY [None]
  - METABOLIC ACIDOSIS [None]
